FAERS Safety Report 5387590-X (Version None)
Quarter: 2007Q3

REPORT INFORMATION
  Report Type: 
  Country: None (occurrence: None)
  Receive Date: 20070711
  Receipt Date: 20070711
  Transmission Date: 20080115
  Serious: Yes (Hospitalization)
  Sender: FDA-Public Use
  Company Number: None

PATIENT
  Sex: Female
  Weight: 75 kg

DRUGS (1)
  1. PROPOFOL [Suspect]
     Indication: ANAESTHESIA
     Dosage: 200 MG ONCE IV
     Route: 042
     Dates: start: 20070627, end: 20070627

REACTIONS (6)
  - ABNORMAL BEHAVIOUR [None]
  - AGITATION [None]
  - ANTICHOLINERGIC SYNDROME [None]
  - DELIRIUM [None]
  - DISORIENTATION [None]
  - POST PROCEDURAL COMPLICATION [None]
